FAERS Safety Report 6107632-3 (Version None)
Quarter: 2009Q1

REPORT INFORMATION
  Report Type: 
  Country: None (occurrence: None)
  Receive Date: 20090309
  Receipt Date: 20090205
  Transmission Date: 20090719
  Serious: No
  Sender: FDA-Public Use
  Company Number: US-BAYER-200812709BCC

PATIENT
  Age: 71 Year
  Sex: Female
  Weight: 63 kg

DRUGS (9)
  1. ASPIRIN [Suspect]
     Indication: ISCHAEMIC HEART DISEASE PROPHYLAXIS
     Dosage: TOTAL DAILY DOSE: 81 MG  UNIT DOSE: 81 MG
     Route: 048
     Dates: start: 20060101
  2. COUMADIN [Suspect]
     Indication: DRUG USE FOR UNKNOWN INDICATION
     Dates: end: 20080701
  3. COUMADIN [Suspect]
     Dates: start: 20080703
  4. LEVOXYL [Concomitant]
  5. ESTROGENIC SUBSTANCE [Concomitant]
  6. FORTEO [Concomitant]
  7. NEXIUM [Concomitant]
  8. OSCAL [Concomitant]
  9. CENTRUM CARDIO MULTIVITAMIN [Concomitant]

REACTIONS (1)
  - INTERNATIONAL NORMALISED RATIO INCREASED [None]
